FAERS Safety Report 15949527 (Version 3)
Quarter: 2019Q2

REPORT INFORMATION
  Report Type: Report from Study
  Country: US (occurrence: US)
  Receive Date: 20190211
  Receipt Date: 20190524
  Transmission Date: 20190711
  Serious: Yes (Disabling)
  Sender: FDA-Public Use
  Company Number: US-EMD SERONO-9070558

PATIENT
  Sex: Female

DRUGS (1)
  1. REBIF [Suspect]
     Active Substance: INTERFERON BETA-1A
     Indication: PRODUCT USED FOR UNKNOWN INDICATION
     Route: 058
     Dates: start: 20150623

REACTIONS (8)
  - Injection site bruising [Unknown]
  - Injection site erythema [Unknown]
  - Memory impairment [Not Recovered/Not Resolved]
  - Injection site discolouration [Unknown]
  - Lack of injection site rotation [Not Recovered/Not Resolved]
  - Wheelchair user [Not Recovered/Not Resolved]
  - Urinary incontinence [Not Recovered/Not Resolved]
  - Stubbornness [Unknown]
